FAERS Safety Report 8832545 (Version 3)
Quarter: 2013Q1

REPORT INFORMATION
  Report Type: Spontaneous
  Country: US (occurrence: US)
  Receive Date: 20121010
  Receipt Date: 20130312
  Transmission Date: 20140127
  Serious: No
  Sender: FDA-Public Use
  Company Number: US-009507513-1209USA004550

PATIENT
  Age: 62 Year
  Sex: Female

DRUGS (6)
  1. NASONEX [Suspect]
     Indication: HYPERSENSITIVITY
     Dosage: 200 MICROGRAM, QD
     Route: 045
     Dates: start: 20120904
  2. JANUMET [Concomitant]
     Route: 048
  3. METFORMIN [Concomitant]
  4. SYNTHROID [Concomitant]
  5. LIPTOR [Concomitant]
  6. PRINIVIL [Concomitant]

REACTIONS (1)
  - Headache [Not Recovered/Not Resolved]
